FAERS Safety Report 4434154-8 (Version None)
Quarter: 2004Q3

REPORT INFORMATION
  Report Type: 
  Country: None (occurrence: None)
  Receive Date: 20040825
  Receipt Date: 20040812
  Transmission Date: 20050211
  Serious: Yes (Death, Life-Threatening, Other)
  Sender: FDA-Public Use
  Company Number: 2004228421NO

PATIENT
  Age: 78 Year
  Sex: Female

DRUGS (9)
  1. ADRIAMYCIN RDF [Suspect]
     Indication: HEPATIC NEOPLASM MALIGNANT
     Dosage: IV
     Route: 042
     Dates: start: 20040414
  2. NOBLIGAN (TRAMADOL HYDROCHLORIDE) [Concomitant]
  3. SURMONTIL [Concomitant]
  4. IDEOS [Concomitant]
  5. LOSEC MUPS (OMEPRAZOLE MAGNESIUM) [Concomitant]
  6. NORVASC [Concomitant]
  7. AFIPRAN [Concomitant]
  8. DIURAL [Concomitant]
  9. PENICILLIN [Concomitant]

REACTIONS (3)
  - ACUTE MYOCARDIAL INFARCTION [None]
  - RESPIRATORY ARREST [None]
  - SYNCOPE [None]
